FAERS Safety Report 7940418-3 (Version None)
Quarter: 2011Q4

REPORT INFORMATION
  Report Type: 
  Country: None (occurrence: None)
  Receive Date: 20111127
  Receipt Date: 20111121
  Transmission Date: 20120403
  Serious: Yes (Hospitalization)
  Sender: FDA-Public Use
  Company Number: IT-BRISTOL-MYERS SQUIBB COMPANY-16245136

PATIENT
  Age: 74 Year
  Sex: Female

DRUGS (10)
  1. LASIX [Suspect]
  2. OMEPRAZOLE [Concomitant]
     Indication: PROPHYLAXIS AGAINST GASTROINTESTINAL ULCER
  3. TAMSULOSIN HYDROCHLORIDE [Concomitant]
     Indication: BENIGN PROSTATIC HYPERPLASIA
  4. NITRODERM [Concomitant]
     Indication: MYOCARDIAL ISCHAEMIA
  5. COUMADIN [Suspect]
     Indication: ATRIAL FIBRILLATION
     Route: 048
     Dates: start: 20080101, end: 20110603
  6. MICARDIS [Suspect]
     Indication: HYPERTENSION
  7. ESKIM [Concomitant]
     Indication: HYPERTRIGLYCERIDAEMIA
  8. ACETYLSALICYLIC ACID SRT [Suspect]
     Route: 048
     Dates: start: 20080101, end: 20110603
  9. ATORVASTATIN CALCIUM [Concomitant]
     Indication: HYPERCHOLESTEROLAEMIA
     Dosage: 1DF=1 UNIT.
  10. METFORMIN [Concomitant]
     Indication: DIABETES MELLITUS

REACTIONS (1)
  - ANAEMIA [None]
